FAERS Safety Report 19943254 (Version 1)
Quarter: 2021Q4

REPORT INFORMATION
  Report Type: Spontaneous
  Country: US (occurrence: US)
  Receive Date: 20211011
  Receipt Date: 20211011
  Transmission Date: 20220303
  Serious: Yes (Disabling)
  Sender: FDA-Public Use
  Company Number: None

PATIENT
  Age: 58 Year
  Sex: Male
  Weight: 78.3 kg

DRUGS (1)
  1. LATANOPROST [Suspect]
     Active Substance: LATANOPROST
     Indication: Intraocular pressure test
     Dosage: ?          QUANTITY:1 DROP(S);OTHER ROUTE:EYE DROPS
     Dates: start: 20210726, end: 20210926

REACTIONS (4)
  - Sciatica [None]
  - Inflammation [None]
  - Pain [None]
  - Product substitution issue [None]

NARRATIVE: CASE EVENT DATE: 20210809
